FAERS Safety Report 7457991-4 (Version None)
Quarter: 2011Q2

REPORT INFORMATION
  Report Type: 
  Country: None (occurrence: None)
  Receive Date: 20110503
  Receipt Date: 20110503
  Transmission Date: 20111010
  Serious: Yes (Hospitalization, Other)
  Sender: FDA-Public Use
  Company Number: None

PATIENT
  Sex: Female
  Weight: 5.98 kg

DRUGS (1)
  1. TOPIRAMATE [Suspect]
     Indication: INFANTILE SPASMS
     Dosage: 45 MG BID PO
     Route: 048
     Dates: start: 20101028, end: 20110128

REACTIONS (9)
  - FOOD AVERSION [None]
  - FAILURE TO THRIVE [None]
  - FEEDING DISORDER [None]
  - DYSGEUSIA [None]
  - HYPOPHAGIA [None]
  - WEIGHT DECREASED [None]
  - IRRITABILITY [None]
  - UNEVALUABLE EVENT [None]
  - CHROMATURIA [None]
